FAERS Safety Report 11129623 (Version 2)
Quarter: 2015Q2

REPORT INFORMATION
  Report Type: Spontaneous
  Country: US (occurrence: US)
  Receive Date: 20150521
  Receipt Date: 20150618
  Transmission Date: 20150821
  Serious: Yes (Hospitalization)
  Sender: FDA-Public Use
  Company Number: US-JNJFOC-20150513428

PATIENT
  Sex: Male

DRUGS (1)
  1. IMBRUVICA [Suspect]
     Active Substance: IBRUTINIB
     Indication: CHRONIC LYMPHOCYTIC LEUKAEMIA
     Dosage: FOR ONE WEEK AND THEN ONE WEEK OFF.
     Route: 048
     Dates: start: 20140620

REACTIONS (4)
  - Clostridium difficile infection [Unknown]
  - Urinary tract infection [Unknown]
  - Prescribed underdose [Unknown]
  - Leukaemic infiltration hepatic [Unknown]
